FAERS Safety Report 12571560 (Version 1)
Quarter: 2016Q3

REPORT INFORMATION
  Report Type: Report from Study
  Country: CA (occurrence: CA)
  Receive Date: 20160719
  Receipt Date: 20160719
  Transmission Date: 20161109
  Serious: Yes (Disabling)
  Sender: FDA-Public Use
  Company Number: CA-ABBVIE-16K-028-1676958-00

PATIENT
  Age: 34 Year
  Sex: Female
  Weight: 54 kg

DRUGS (2)
  1. HUMIRA [Suspect]
     Active Substance: ADALIMUMAB
     Indication: PRODUCT USED FOR UNKNOWN INDICATION
     Route: 058
  2. ENBREL [Concomitant]
     Active Substance: ETANERCEPT
     Indication: ANKYLOSING SPONDYLITIS
     Route: 058

REACTIONS (6)
  - Acne [Not Recovered/Not Resolved]
  - Erythema [Not Recovered/Not Resolved]
  - Peripheral swelling [Not Recovered/Not Resolved]
  - Stomatitis [Not Recovered/Not Resolved]
  - Oropharyngeal pain [Not Recovered/Not Resolved]
  - Joint swelling [Not Recovered/Not Resolved]
